FAERS Safety Report 9760190 (Version 2)
Quarter: 2014Q1

REPORT INFORMATION
  Report Type: Report from Study
  Country: CA (occurrence: CA)
  Receive Date: 20131216
  Receipt Date: 20140118
  Transmission Date: 20141002
  Serious: Yes (Death, Hospitalization)
  Sender: FDA-Public Use
  Company Number: CA-ABBVIE-13P-028-1178559-00

PATIENT
  Age: 76 Year
  Sex: Male
  Weight: 71.4 kg

DRUGS (8)
  1. HUMIRA [Suspect]
     Indication: RHEUMATOID ARTHRITIS
     Route: 058
     Dates: start: 20060908, end: 20130815
  2. ALTACE [Concomitant]
     Indication: PRODUCT USED FOR UNKNOWN INDICATION
     Route: 048
  3. PREDNISONE [Concomitant]
     Indication: RHEUMATOID ARTHRITIS
     Route: 048
     Dates: start: 2004
  4. HUMULIN N [Concomitant]
     Indication: PRODUCT USED FOR UNKNOWN INDICATION
     Route: 058
     Dates: start: 2005
  5. HUMULIN R [Concomitant]
     Indication: PRODUCT USED FOR UNKNOWN INDICATION
     Route: 058
     Dates: start: 2005
  6. VITAMIN D [Concomitant]
     Indication: OSTEOPOROSIS
  7. NEXIUM [Concomitant]
     Indication: GASTRIC DISORDER
     Route: 048
  8. NEXIUM [Concomitant]
     Indication: PROPHYLAXIS

REACTIONS (6)
  - Coma [Fatal]
  - Upper respiratory tract infection [Recovered/Resolved]
  - Convulsion [Not Recovered/Not Resolved]
  - Herpes simplex encephalitis [Fatal]
  - Pneumonia [Recovered/Resolved]
  - Hypotension [Recovered/Resolved]
